FAERS Safety Report 22332712 (Version 1)
Quarter: 2023Q2

REPORT INFORMATION
  Report Type: Spontaneous
  Country: US (occurrence: US)
  Receive Date: 20230517
  Receipt Date: 20230517
  Transmission Date: 20230722
  Serious: No
  Sender: FDA-Public Use
  Company Number: US-UPSHER-SMITH LABORATORIES, LLC-2022USL00890

PATIENT
  Sex: Female

DRUGS (2)
  1. KLOR-CON [Suspect]
     Active Substance: POTASSIUM CHLORIDE
     Indication: Blood potassium decreased
     Dosage: 30 MEQ, 1X/DAY IN THE MONTING (IN ADDITION TO 20 MEQ AT 4 PM)
     Route: 048
  2. KLOR-CON [Suspect]
     Active Substance: POTASSIUM CHLORIDE
     Indication: Ill-defined disorder
     Dosage: 20 MEQ, 1X/DAY AT 4 PM (IN ADDITION TO 30 MEQ IN THE MORNING)
     Route: 048

REACTIONS (3)
  - Dyspnoea [Not Recovered/Not Resolved]
  - Product residue present [Not Recovered/Not Resolved]
  - Unevaluable event [Not Recovered/Not Resolved]
